FAERS Safety Report 6082820-3 (Version None)
Quarter: 2009Q1

REPORT INFORMATION
  Report Type: 
  Country: None (occurrence: None)
  Receive Date: 20090218
  Receipt Date: 20090211
  Transmission Date: 20090719
  Serious: Yes (Hospitalization)
  Sender: FDA-Public Use
  Company Number: US-ELI_LILLY_AND_COMPANY-US200901001417

PATIENT
  Age: 81 Year
  Sex: Female

DRUGS (4)
  1. HUMATROPE [Suspect]
     Indication: HYPOPITUITARISM
  2. GLIPIZIDE [Concomitant]
  3. SULAR [Concomitant]
  4. METOPROLOL TARTRATE [Concomitant]

REACTIONS (5)
  - BLOOD GLUCOSE INCREASED [None]
  - BRADYPHRENIA [None]
  - ENDOCARDITIS BACTERIAL [None]
  - MEMORY IMPAIRMENT [None]
  - PYREXIA [None]
